FAERS Safety Report 6702561-6 (Version None)
Quarter: 2010Q2

REPORT INFORMATION
  Report Type: 
  Country: None (occurrence: None)
  Receive Date: 20100429
  Receipt Date: 20100428
  Transmission Date: 20101027
  Serious: Yes (Life-Threatening)
  Sender: FDA-Public Use
  Company Number: FR-ASTRAZENECA-2010SE19034

PATIENT
  Age: 9413 Day
  Sex: Female

DRUGS (3)
  1. DIPRIVAN [Suspect]
     Route: 042
     Dates: start: 20100322
  2. CELOCURINE [Suspect]
     Route: 042
     Dates: start: 20100322
  3. ULTIVA [Suspect]
     Route: 042
     Dates: start: 20100322

REACTIONS (3)
  - ANAPHYLACTIC SHOCK [None]
  - BRONCHOSPASM [None]
  - GENERALISED ERYTHEMA [None]
